FAERS Safety Report 7627609-6 (Version None)
Quarter: 2011Q3

REPORT INFORMATION
  Report Type: 
  Country: None (occurrence: None)
  Receive Date: 20110713
  Receipt Date: 20110629
  Transmission Date: 20111222
  Serious: Yes (Other)
  Sender: FDA-Public Use
  Company Number: TCI2011A03774

PATIENT
  Sex: Male

DRUGS (3)
  1. AMARYL [Concomitant]
  2. ACTOS [Suspect]
     Dosage: 2 TAB. (2 TAB., 1D)
  3. GRACTIVE (SITAGLIPTIN PHOSPHATE) [Concomitant]

REACTIONS (1)
  - BLADDER CANCER [None]
